FAERS Safety Report 6079919-4 (Version None)
Quarter: 2009Q1

REPORT INFORMATION
  Report Type: 
  Country: None (occurrence: None)
  Receive Date: 20090217
  Receipt Date: 20090209
  Transmission Date: 20090719
  Serious: Yes (Life-Threatening)
  Sender: FDA-Public Use
  Company Number: FR-AVENTIS-200910451FR

PATIENT
  Age: 70 Year
  Sex: Female

DRUGS (9)
  1. LASILIX FAIBLE [Suspect]
     Indication: DRUG USE FOR UNKNOWN INDICATION
     Route: 048
     Dates: end: 20081219
  2. NISISCO [Suspect]
     Route: 048
     Dates: end: 20081219
  3. METFORMIN HCL [Suspect]
     Route: 048
     Dates: end: 20081219
  4. AMLOD [Concomitant]
     Route: 048
     Dates: end: 20081219
  5. PRAVASTATINE SODIQUE [Concomitant]
     Indication: BLOOD CHOLESTEROL INCREASED
     Route: 048
     Dates: end: 20081219
  6. DIAMICRON [Concomitant]
     Route: 048
     Dates: end: 20081219
  7. RILMENIDINE [Concomitant]
     Route: 048
     Dates: end: 20081219
  8. INSULIN IV [Concomitant]
     Indication: DRUG USE FOR UNKNOWN INDICATION
     Route: 042
     Dates: start: 20081224
  9. CEFOTAXIME [Concomitant]
     Dates: start: 20081224

REACTIONS (4)
  - DRUG INTERACTION [None]
  - HYPOGLYCAEMIA [None]
  - LACTIC ACIDOSIS [None]
  - RENAL FAILURE [None]
